FAERS Safety Report 8494338-9 (Version None)
Quarter: 2012Q3

REPORT INFORMATION
  Report Type: 
  Country: None (occurrence: None)
  Receive Date: 20120709
  Receipt Date: 20120629
  Transmission Date: 20120928
  Serious: Yes (Hospitalization)
  Sender: FDA-Public Use
  Company Number: BR-US-EMD SERONO, INC.-7144414

PATIENT
  Sex: Male

DRUGS (7)
  1. REBIF [Suspect]
     Indication: PRIMARY PROGRESSIVE MULTIPLE SCLEROSIS
     Dates: start: 20040728
  2. GALANTAMINE HYDROBROMIDE [Concomitant]
     Indication: PRODUCT USED FOR UNKNOWN INDICATION
  3. ATENOLOL [Concomitant]
     Indication: PRODUCT USED FOR UNKNOWN INDICATION
  4. LOSARTAM (LOSARTAN) [Concomitant]
     Indication: PRODUCT USED FOR UNKNOWN INDICATION
  5. MEMANTINE HCL [Concomitant]
     Indication: PRODUCT USED FOR UNKNOWN INDICATION
  6. NITROFURANTOIN [Concomitant]
     Indication: URINARY TRACT INFECTION
  7. PREGABALIN [Concomitant]
     Indication: PRODUCT USED FOR UNKNOWN INDICATION

REACTIONS (10)
  - MUSCULOSKELETAL PAIN [None]
  - DISEASE PROGRESSION [None]
  - BEDRIDDEN [None]
  - ENDOCARDITIS [None]
  - URINARY TRACT INFECTION [None]
  - EMOTIONAL DISORDER [None]
  - ARTHRALGIA [None]
  - DECUBITUS ULCER [None]
  - OFF LABEL USE [None]
  - MOTOR DYSFUNCTION [None]
